FAERS Safety Report 5033144-4 (Version None)
Quarter: 2006Q2

REPORT INFORMATION
  Report Type: 
  Country: None (occurrence: None)
  Receive Date: 20060505
  Receipt Date: 20060125
  Transmission Date: 20061013
  Serious: Yes (Other)
  Sender: FDA-Public Use
  Company Number: PHEH2006US01050

PATIENT
  Age: 60 Year
  Sex: Female

DRUGS (3)
  1. DIOVAN HCT [Suspect]
     Indication: HYPERTENSION
     Dosage: 106/12.5MG
     Dates: start: 20051201
  2. LOTREL [Suspect]
     Indication: HYPERTENSION
     Dosage: 5/20 MG
     Dates: start: 20051201
  3. TOPROL-XL [Suspect]
     Indication: HYPERTENSION
     Dosage: 200 MG, QD
     Dates: start: 20051201

REACTIONS (1)
  - HYPERTENSION [None]
